FAERS Safety Report 6024067-2 (Version None)
Quarter: 2008Q4

REPORT INFORMATION
  Report Type: 
  Country: None (occurrence: None)
  Receive Date: 20081224
  Receipt Date: 20081121
  Transmission Date: 20090506
  Serious: Yes (Other)
  Sender: FDA-Public Use
  Company Number: 001#3#2008-00657

PATIENT
  Age: 38 Year
  Sex: Female

DRUGS (6)
  1. NEUPRO [Suspect]
     Indication: PARKINSON'S DISEASE
     Dosage: 12 MG/24H (12 MG/24H 1 IN 1 DAY (S)) TRANSDERMAL
     Route: 062
     Dates: start: 20071001
  2. ROPINIROLE HYDROCHLORIDE [Concomitant]
  3. AMANTADINE HCL [Concomitant]
  4. ENTACAPONE (ENTACAPONE) [Concomitant]
  5. LEVODOPA (LEVODOPA) [Concomitant]
  6. JODTHYROX (LEVOTHYROXINE SODIUM, POTASSIUM IODIDE) [Concomitant]

REACTIONS (5)
  - CARDIOVASCULAR DISORDER [None]
  - DRUG INEFFECTIVE [None]
  - DYSSTASIA [None]
  - MOTOR DYSFUNCTION [None]
  - NAUSEA [None]
